FAERS Safety Report 12696582 (Version 2)
Quarter: 2016Q3

REPORT INFORMATION
  Report Type: Spontaneous
  Country: US (occurrence: US)
  Receive Date: 20160830
  Receipt Date: 20160906
  Transmission Date: 20161109
  Serious: Yes (Hospitalization, Other)
  Sender: FDA-Public Use
  Company Number: US-PFIZER INC-2016400363

PATIENT
  Age: 54 Year
  Sex: Male

DRUGS (2)
  1. VIAGRA [Suspect]
     Active Substance: SILDENAFIL CITRATE
     Indication: CARDIOVASCULAR DISORDER
     Dosage: 100MG TABLETS
  2. COUMADIN [Concomitant]
     Active Substance: WARFARIN SODIUM
     Indication: ANTICOAGULANT THERAPY
     Dosage: 4 MG, 1X/DAY

REACTIONS (12)
  - Abdominal distension [Recovered/Resolved]
  - Crohn^s disease [Unknown]
  - Condition aggravated [Unknown]
  - Peripheral swelling [Recovered/Resolved]
  - Renal failure [Recovered/Resolved]
  - Pulmonary thrombosis [Unknown]
  - Asthenia [Recovered/Resolved]
  - Weight increased [Unknown]
  - Haematochezia [Recovered/Resolved]
  - Dyspnoea [Recovering/Resolving]
  - Fluid retention [Recovered/Resolved]
  - Product use issue [Unknown]

NARRATIVE: CASE EVENT DATE: 2016
